FAERS Safety Report 8992993 (Version 1)
Quarter: 2013Q1

REPORT INFORMATION
  Report Type: Spontaneous
  Country: US (occurrence: US)
  Receive Date: 20130102
  Receipt Date: 20130102
  Transmission Date: 20140127
  Serious: Yes (Hospitalization, Other)
  Sender: FDA-Public Use
  Company Number: PHEH2012US025517

PATIENT
  Age: 74 Year
  Sex: Female

DRUGS (2)
  1. AFINITOR [Suspect]
     Dosage: 5 MG, QD
     Route: 048
     Dates: start: 20120522
  2. ATACAND [Concomitant]

REACTIONS (3)
  - Renal disorder [Recovering/Resolving]
  - Local swelling [Recovering/Resolving]
  - Joint swelling [Recovering/Resolving]
